FAERS Safety Report 20844171 (Version 4)
Quarter: 2022Q4

REPORT INFORMATION
  Report Type: Spontaneous
  Country: US (occurrence: None)
  Receive Date: 20220518
  Receipt Date: 20221006
  Transmission Date: 20230113
  Serious: Yes (Hospitalization, Disabling, Other)
  Sender: FDA-Public Use
  Company Number: US-ROCHE-3096125

PATIENT
  Sex: Female

DRUGS (3)
  1. SUSVIMO [Suspect]
     Active Substance: RANIBIZUMAB
     Indication: Age-related macular degeneration
     Route: 065
     Dates: start: 20220328, end: 20220512
  2. SUSVIMO [Suspect]
     Active Substance: RANIBIZUMAB
  3. SUSVIMO [Suspect]
     Active Substance: RANIBIZUMAB

REACTIONS (7)
  - Ulcerative keratitis [Unknown]
  - Stitch abscess [Unknown]
  - Pain [Unknown]
  - Corneal abscess [Unknown]
  - Vitreous haemorrhage [Unknown]
  - Infective scleritis [Recovered/Resolved]
  - Medical device removal [Unknown]

NARRATIVE: CASE EVENT DATE: 20220425
